FAERS Safety Report 6994252-1 (Version None)
Quarter: 2010Q3

REPORT INFORMATION
  Report Type: 
  Country: None (occurrence: None)
  Receive Date: 20100917
  Receipt Date: 20070507
  Transmission Date: 20110219
  Serious: Yes (Disabling)
  Sender: FDA-Public Use
  Company Number: US-ASTRAZENECA-2006UW24856

PATIENT
  Age: 14639 Day
  Sex: Male
  Weight: 117.9 kg

DRUGS (18)
  1. SEROQUEL [Suspect]
     Indication: SCHIZOPHRENIA
     Dosage: 25 TO 300 MG
     Route: 048
     Dates: start: 19981003
  2. SEROQUEL [Suspect]
     Indication: BIPOLAR DISORDER
     Dosage: 25 TO 300 MG
     Route: 048
     Dates: start: 19981003
  3. SEROQUEL [Suspect]
     Indication: DEPRESSION
     Dosage: 25 TO 300 MG
     Route: 048
     Dates: start: 19981003
  4. SEROQUEL [Suspect]
     Route: 048
     Dates: start: 20030101
  5. SEROQUEL [Suspect]
     Route: 048
     Dates: start: 20030101
  6. SEROQUEL [Suspect]
     Route: 048
     Dates: start: 20030101
  7. ZYPREXA [Suspect]
     Dosage: 5 TO 20 MG
     Dates: start: 19980101
  8. GEODON [Concomitant]
     Dates: start: 20021104
  9. HALDOL [Concomitant]
  10. NAVANE [Concomitant]
  11. STELAZINE [Concomitant]
  12. THORAZINE [Concomitant]
  13. TRILAFON [Concomitant]
  14. PAXIL [Concomitant]
     Dates: start: 20000101
  15. METFORMIN [Concomitant]
     Dates: start: 20030205
  16. GEMFIBROZIL [Concomitant]
     Dates: start: 20031112
  17. BENZTROPINE MESYLATE [Concomitant]
     Dates: start: 20021104
  18. PROPRANOLOL HYDROCHLORIDE [Concomitant]
     Dates: start: 20021104

REACTIONS (6)
  - DIABETES MELLITUS [None]
  - DIABETES MELLITUS INADEQUATE CONTROL [None]
  - DIABETIC COMA [None]
  - HYPERGLYCAEMIA [None]
  - OVERDOSE [None]
  - TYPE 2 DIABETES MELLITUS [None]
